FAERS Safety Report 8851326 (Version 3)
Quarter: 2013Q2

REPORT INFORMATION
  Report Type: Report from Study
  Country: JP (occurrence: JP)
  Receive Date: 20121022
  Receipt Date: 20130614
  Transmission Date: 20140414
  Serious: Yes (Other)
  Sender: FDA-Public Use
  Company Number: JP-009507513-1210JPN008160

PATIENT
  Age: 56 Year
  Sex: Male
  Weight: 64 kg

DRUGS (5)
  1. TELAVIC [Suspect]
     Dosage: 1500 MG QD
     Route: 048
     Dates: start: 20120825, end: 20121107
  2. CELESTAMINE COMBINATION TABLETS [Concomitant]
     Indication: PROPHYLAXIS
     Dosage: 3 DF, QD
     Route: 048
     Dates: end: 20121018
  3. PEGINTRON [Suspect]
     Indication: CHRONIC HEPATITIS C
     Dosage: 1.5 MICROGRAM PER KILOGRAM, QW
     Route: 058
     Dates: start: 20120816
  4. REBETOL [Suspect]
     Indication: CHRONIC HEPATITIS C
     Dosage: 800 MG, QD
     Route: 048
     Dates: start: 20120816
  5. TELAVIC [Suspect]
     Indication: CHRONIC HEPATITIS C
     Dosage: 2250 MG, QD
     Route: 048
     Dates: start: 20120816, end: 20120825

REACTIONS (1)
  - Renal disorder [Recovering/Resolving]
